FAERS Safety Report 9307986 (Version 4)
Quarter: 2013Q4

REPORT INFORMATION
  Report Type: Spontaneous
  Country: BE (occurrence: BE)
  Receive Date: 20130524
  Receipt Date: 20131128
  Transmission Date: 20140711
  Serious: Yes (Other)
  Sender: FDA-Public Use
  Company Number: BE-ELI_LILLY_AND_COMPANY-BE201305004817

PATIENT
  Sex: Male
  Weight: 75 kg

DRUGS (6)
  1. FORSTEO [Suspect]
     Indication: OSTEOPOROSIS
     Dosage: UNK
     Route: 058
     Dates: start: 20130318, end: 20130521
  2. ASAFLOW [Concomitant]
     Indication: CARDIAC FIBRILLATION
     Dosage: 80 MG, QD
     Route: 048
  3. OMEPRAZOLE [Concomitant]
     Indication: GASTROOESOPHAGEAL REFLUX DISEASE
     Dosage: 40 MG, QD
     Route: 048
  4. LIPITOR [Concomitant]
     Indication: HYPERCHOLESTEROLAEMIA
     Dosage: 80 MG, QD
     Route: 048
  5. ZOLPIDEM [Concomitant]
     Indication: INSOMNIA
     Route: 048
  6. TRANSTEC [Concomitant]
     Indication: PAIN

REACTIONS (1)
  - Anal squamous cell carcinoma [Not Recovered/Not Resolved]
